FAERS Safety Report 5669253-6 (Version None)
Quarter: 2008Q1

REPORT INFORMATION
  Report Type: 
  Country: None (occurrence: None)
  Receive Date: 20080313
  Receipt Date: 20080313
  Transmission Date: 20080703
  Serious: Yes (Other)
  Sender: FDA-Public Use
  Company Number: None

PATIENT
  Age: 85 Year
  Sex: Female
  Weight: 94.8018 kg

DRUGS (1)
  1. HEPARIN [Suspect]
     Indication: STEROID THERAPY
     Dosage: 90 MGM BID SQ
     Route: 058

REACTIONS (1)
  - SUBCUTANEOUS NODULE [None]
